FAERS Safety Report 6748449-6 (Version None)
Quarter: 2010Q2

REPORT INFORMATION
  Report Type: 
  Country: None (occurrence: None)
  Receive Date: 20100526
  Receipt Date: 20090819
  Transmission Date: 20101027
  Serious: Yes (Other)
  Sender: FDA-Public Use
  Company Number: 285393

PATIENT
  Age: 63 Year
  Sex: Female
  Weight: 59 kg

DRUGS (18)
  1. ACTIVELLA [Suspect]
     Indication: HORMONE REPLACEMENT THERAPY
     Dosage: 1 TAB, QD, ORAL
     Route: 048
     Dates: start: 20010701, end: 20040101
  2. PREMPRO [Suspect]
     Indication: HORMONE REPLACEMENT THERAPY
     Dosage: 2.5 MG, ORAL ; 5 MG
     Route: 048
     Dates: start: 19980416, end: 19990611
  3. PREMPRO [Suspect]
     Indication: HOT FLUSH
     Dosage: 2.5 MG, ORAL ; 5 MG
     Route: 048
     Dates: start: 19980416, end: 19990611
  4. PREMPRO [Suspect]
     Indication: HORMONE REPLACEMENT THERAPY
     Dosage: 2.5 MG, ORAL ; 5 MG
     Route: 048
     Dates: start: 19990612, end: 19990929
  5. PREMPRO [Suspect]
     Indication: HOT FLUSH
     Dosage: 2.5 MG, ORAL ; 5 MG
     Route: 048
     Dates: start: 19990612, end: 19990929
  6. COMBIPATCH [Suspect]
     Indication: HORMONE REPLACEMENT THERAPY
     Dosage: 50/250, TRANSDERMAL ; 50/140 ; 50/250, TRANSDERMAL
     Route: 062
     Dates: start: 19990930, end: 20000601
  7. COMBIPATCH [Suspect]
     Indication: HORMONE REPLACEMENT THERAPY
     Dosage: 50/250, TRANSDERMAL ; 50/140 ; 50/250, TRANSDERMAL
     Route: 062
     Dates: start: 20000601, end: 20001001
  8. COMBIPATCH [Suspect]
     Indication: HORMONE REPLACEMENT THERAPY
     Dosage: 50/250, TRANSDERMAL ; 50/140 ; 50/250, TRANSDERMAL
     Route: 062
     Dates: start: 20001001, end: 20010701
  9. FUROSEMIDE [Concomitant]
  10. DIGOXIN [Concomitant]
  11. CITALOPRAM HYDROBROMIDE [Concomitant]
  12. POTASSIUM (POTASSIUM) [Concomitant]
  13. METOPROLOL TARTRATE [Concomitant]
  14. WARFARIN SODIUM [Concomitant]
  15. BUPROPION HYDROCHLORIDE [Concomitant]
  16. DOVONEX (CALCIPOTRIOL) [Concomitant]
  17. ASPIRIN [Concomitant]
  18. QUININE (QUININE) [Concomitant]

REACTIONS (1)
  - BREAST CANCER [None]
